FAERS Safety Report 23760213 (Version 1)
Quarter: 2024Q2

REPORT INFORMATION
  Report Type: Spontaneous
  Country: US (occurrence: US)
  Receive Date: 20240419
  Receipt Date: 20240419
  Transmission Date: 20240715
  Serious: No
  Sender: FDA-Public Use
  Company Number: US-UROGEN PHARMA LTD.-2024-UGN-000042

PATIENT

DRUGS (4)
  1. JELMYTO [Suspect]
     Active Substance: MITOMYCIN
     Indication: Transitional cell cancer of the renal pelvis and ureter
     Dosage: ONCE A WEEK (INSTILLATION)
     Dates: start: 20240226, end: 20240226
  2. JELMYTO [Suspect]
     Active Substance: MITOMYCIN
     Dosage: ONCE A WEEK (INSTILLATION)
     Dates: start: 20240304, end: 20240304
  3. JELMYTO [Suspect]
     Active Substance: MITOMYCIN
     Dosage: ONCE A WEEK (INSTILLATION)
     Dates: start: 20240311, end: 20240311
  4. JELMYTO [Suspect]
     Active Substance: MITOMYCIN
     Dosage: TWICE A WEEK (INSTILLATION)
     Dates: start: 20240325, end: 20240325

REACTIONS (2)
  - Blood urea increased [Unknown]
  - Blood creatinine increased [Unknown]

NARRATIVE: CASE EVENT DATE: 20240318
